FAERS Safety Report 6790177-5 (Version None)
Quarter: 2010Q2

REPORT INFORMATION
  Report Type: 
  Country: None (occurrence: None)
  Receive Date: 20100624
  Receipt Date: 20100613
  Transmission Date: 20101027
  Serious: No
  Sender: FDA-Public Use
  Company Number: US-B.I. PHARMACEUTICALS,INC./RIDGEFIELD-2010-BP-06748BP

PATIENT
  Sex: Male

DRUGS (3)
  1. ZANTAC 150 [Suspect]
     Indication: DYSPEPSIA
     Route: 048
     Dates: start: 19990101, end: 19990101
  2. FLOVENT [Concomitant]
     Indication: ASTHMA
     Dates: start: 20100201
  3. SINGULAIR [Concomitant]
     Indication: ASTHMA
     Dates: start: 20100201

REACTIONS (2)
  - ABDOMINAL DISCOMFORT [None]
  - TREMOR [None]
